FAERS Safety Report 5856658-3 (Version None)
Quarter: 2008Q3

REPORT INFORMATION
  Report Type: 
  Country: None (occurrence: None)
  Receive Date: 20080825
  Receipt Date: 20080814
  Transmission Date: 20090109
  Serious: Yes (Life-Threatening, Hospitalization)
  Sender: FDA-Public Use
  Company Number: US-AVENTIS-200811925US

PATIENT
  Sex: Female

DRUGS (26)
  1. KETEK [Suspect]
     Dates: start: 20060220, end: 20080225
  2. KETEK [Suspect]
     Indication: BRONCHITIS
     Dates: start: 20060220, end: 20080225
  3. LEVAQUIN [Concomitant]
     Dosage: DOSE: 750 MG (2 ROUNDS)
     Dates: start: 20060101, end: 20060101
  4. PREDNISONE TAB [Concomitant]
     Dates: start: 20060201
  5. CODEINE COUGH SYRUP [Concomitant]
     Dosage: DOSE: UNK
     Dates: start: 20060201
  6. ALBUTEROL [Concomitant]
     Dosage: DOSE: UNK
  7. LIPITOR [Concomitant]
     Dosage: DOSE: UNK
     Dates: end: 20060219
  8. LIPITOR [Concomitant]
     Dosage: DOSE: 0.5MG TAB X5 DAYS
     Dates: start: 20060220, end: 20060201
  9. LIPITOR [Concomitant]
     Dates: start: 20060201
  10. ADVAIR DISKUS 100/50 [Concomitant]
     Dosage: DOSE: UNK
  11. MUCINEX [Concomitant]
     Dosage: DOSE: UNK
  12. CLARINEX [Concomitant]
     Dosage: DOSE: UNK
  13. FLONASE [Concomitant]
     Dosage: DOSE: UNK
  14. LASIX [Concomitant]
  15. NAPROXEN [Concomitant]
  16. LOTENSIN                           /00909102/ [Concomitant]
  17. CYCLOBENZAPRINE HCL [Concomitant]
  18. K-DUR [Concomitant]
  19. NIFEDIPINE [Concomitant]
  20. ASPIRIN [Concomitant]
  21. LOPID [Concomitant]
  22. WELLBUTRIN XL [Concomitant]
  23. PAXIL [Concomitant]
  24. ACCOLATE [Concomitant]
  25. OCUVITE                            /01053801/ [Concomitant]
     Dosage: DOSE: UNK
  26. PRILOSEC [Concomitant]
     Dosage: DOSE: UNK

REACTIONS (25)
  - ABDOMINAL PAIN [None]
  - ACIDOSIS [None]
  - ALANINE AMINOTRANSFERASE INCREASED [None]
  - ANAEMIA [None]
  - ANOREXIA [None]
  - ASPARTATE AMINOTRANSFERASE INCREASED [None]
  - ATELECTASIS [None]
  - CIRCULATORY COLLAPSE [None]
  - COLON GANGRENE [None]
  - CONSTIPATION [None]
  - DEPRESSED LEVEL OF CONSCIOUSNESS [None]
  - GANGRENE [None]
  - HYPERGLYCAEMIA [None]
  - INTESTINAL PERFORATION [None]
  - ISCHAEMIC HEPATITIS [None]
  - NAUSEA [None]
  - NECROSIS ISCHAEMIC [None]
  - PSEUDOMEMBRANOUS COLITIS [None]
  - RENAL FAILURE [None]
  - RESPIRATORY FAILURE [None]
  - SEPTIC SHOCK [None]
  - THROMBOCYTOPENIA [None]
  - VISUAL IMPAIRMENT [None]
  - VOMITING [None]
  - WEIGHT DECREASED [None]
